FAERS Safety Report 7049102-4 (Version None)
Quarter: 2010Q4

REPORT INFORMATION
  Report Type: 
  Country: None (occurrence: None)
  Receive Date: 20101007
  Receipt Date: 20100930
  Transmission Date: 20110411
  Serious: Yes (Hospitalization)
  Sender: FDA-Public Use
  Company Number: 005239

PATIENT
  Sex: Female

DRUGS (5)
  1. CERTOLIZUMAB PEGOL [Suspect]
     Indication: RHEUMATOID ARTHRITIS
     Dosage: 400 MG 1X/MONTH SUBCUTANEOUS
     Route: 058
     Dates: start: 20031015
  2. BENADRYL [Concomitant]
  3. CARVEDILOL [Concomitant]
  4. NITROSTAT [Concomitant]
  5. PLAVIX [Concomitant]

REACTIONS (4)
  - BLOOD CHOLESTEROL ABNORMAL [None]
  - GASTRIC DISORDER [None]
  - GASTROENTERITIS VIRAL [None]
  - HYPERTENSION [None]
